FAERS Safety Report 5794773-3 (Version None)
Quarter: 2008Q2

REPORT INFORMATION
  Report Type: 
  Country: None (occurrence: None)
  Receive Date: 20080627
  Receipt Date: 20080627
  Transmission Date: 20081010
  Serious: Yes (Hospitalization)
  Sender: FDA-Public Use
  Company Number: None

PATIENT
  Sex: Female
  Weight: 73.93 kg

DRUGS (4)
  1. FLUOROURACIL [Suspect]
     Dosage: 5264 MG
     Dates: end: 20080603
  2. BEVACIZUMAB (RHUMAB VEGF) [Suspect]
     Dosage: 405.5 MG
     Dates: end: 20080603
  3. LEUCOVORIN CALCIUM [Suspect]
     Dosage: 752 MG
     Dates: end: 20080603
  4. ELOXATIN [Suspect]
     Dosage: 160 MG
     Dates: end: 20080603

REACTIONS (3)
  - ABDOMINAL PAIN [None]
  - DEHYDRATION [None]
  - PROCTALGIA [None]
